FAERS Safety Report 15209159 (Version 4)
Quarter: 2018Q3

REPORT INFORMATION
  Report Type: Report from Study
  Country: JP (occurrence: JP)
  Receive Date: 20180727
  Receipt Date: 20180828
  Transmission Date: 20181010
  Serious: Yes (Death, Hospitalization, Disabling, Other)
  Sender: FDA-Public Use
  Company Number: JP-ROCHE-2159194

PATIENT
  Age: 70 Year
  Sex: Female
  Weight: 41 kg

DRUGS (26)
  1. DOXIL [Suspect]
     Active Substance: DOXORUBICIN HYDROCHLORIDE
     Indication: MALIGNANT PERITONEAL NEOPLASM
     Dosage: CUM.DOSE PRIOR TO SAE:53MG. DATE OF LAST ADMINISTRATION 13/JUL/2018
     Route: 041
     Dates: start: 20180606
  2. ACETAMINOPHEN. [Concomitant]
     Active Substance: ACETAMINOPHEN
     Indication: PYREXIA
     Dosage: DOSAGE IS UNCERTAIN.
     Route: 042
  3. MORPHINE HYDROCHLORIDE [Concomitant]
     Active Substance: MORPHINE HYDROCHLORIDE
     Indication: CANCER PAIN
     Dosage: DOSAGE IS UNCERTAIN.
     Route: 048
     Dates: start: 20180530
  4. OXYCODONE HYDROCHLORIDE. [Concomitant]
     Active Substance: OXYCODONE HYDROCHLORIDE
     Indication: CANCER PAIN
     Dosage: DOSAGE IS UNCERTAIN.
     Route: 065
     Dates: start: 20171002
  5. BETAMETHASONE SODIUM PHOSPHATE [Concomitant]
     Active Substance: BETAMETHASONE SODIUM PHOSPHATE
     Indication: FATIGUE
     Dosage: DOSAGE IS UNCERTAIN.
     Route: 041
     Dates: start: 20170709
  6. VANCOMYCIN HYDROCHLORIDE. [Concomitant]
     Active Substance: VANCOMYCIN HYDROCHLORIDE
     Indication: INFECTION
     Route: 041
     Dates: start: 20170721
  7. DOCETAXEL. [Concomitant]
     Active Substance: DOCETAXEL
     Route: 065
     Dates: start: 20180606
  8. DORIPENEM. [Concomitant]
     Active Substance: DORIPENEM
     Dosage: DOSE INCREASED
     Route: 065
     Dates: end: 20180805
  9. ACETAMINOPHEN. [Concomitant]
     Active Substance: ACETAMINOPHEN
     Indication: CANCER PAIN
     Dosage: DOSAGE IS UNCERTAIN.
     Route: 065
     Dates: start: 20170922
  10. MAGNESIUM OXIDE. [Concomitant]
     Active Substance: MAGNESIUM OXIDE
     Indication: CONSTIPATION
     Dosage: DOSAGE IS UNCERTAIN.
     Route: 048
     Dates: start: 20171001
  11. MECOBALAMIN [Concomitant]
     Active Substance: METHYLCOBALAMIN
     Indication: NEUROPATHY PERIPHERAL
     Dosage: DOSAGE IS UNCERTAIN.
     Route: 048
     Dates: start: 20171003
  12. BEVACIZUMAB. [Suspect]
     Active Substance: BEVACIZUMAB
     Indication: MALIGNANT PERITONEAL NEOPLASM
     Dosage: CUM.DOSE PRIOR TO SAE:1284MG. DATE OF LAST ADMINISTRATION 27/JUN/2018
     Route: 041
     Dates: start: 20180606
  13. ESOMEPRAZOLE MAGNESIUM. [Concomitant]
     Active Substance: ESOMEPRAZOLE MAGNESIUM
     Indication: GASTRITIS
     Dosage: DOSAGE IS UNCERTAIN.
     Route: 048
     Dates: start: 20171011
  14. SENNOSIDE [Concomitant]
     Active Substance: SENNOSIDES
     Indication: CONSTIPATION
     Dosage: DOSAGE IS UNCERTAIN.
     Route: 048
     Dates: start: 20171022
  15. ZOLPIDEM TARTRATE. [Concomitant]
     Active Substance: ZOLPIDEM TARTRATE
     Indication: INSOMNIA
     Dosage: DOSAGE IS UNCERTAIN.
     Route: 048
     Dates: start: 20180307
  16. LEVOTHYROXINE SODIUM. [Concomitant]
     Active Substance: LEVOTHYROXINE SODIUM
     Indication: HYPOTHYROIDISM
     Dosage: DOSAGE IS UNCERTAIN.
     Route: 048
     Dates: start: 20170828
  17. LOXOPROFEN [Concomitant]
     Active Substance: LOXOPROFEN
     Indication: CANCER PAIN
     Dosage: DOSAGE IS UNCERTAIN.
     Route: 048
     Dates: start: 20171016
  18. DIPROPHYLLINE [Concomitant]
     Active Substance: DYPHYLLINE
     Indication: NAUSEA
     Dosage: DOSAGE IS UNCERTAIN.
     Route: 048
     Dates: start: 20180129
  19. MORPHINE HYDROCHLORIDE [Concomitant]
     Active Substance: MORPHINE HYDROCHLORIDE
     Dosage: DOSAGE IS UNCERTAIN.
     Route: 041
     Dates: start: 20180530
  20. FLURBIPROFEN AXETIL [Concomitant]
     Active Substance: FLURBIPROFEN AXETIL
     Indication: CANCER PAIN
     Dosage: DOSAGE IS UNCERTAIN.
     Route: 041
     Dates: start: 20170922
  21. HYDROXYZINE HYDROCHLORIDE. [Concomitant]
     Active Substance: HYDROXYZINE HYDROCHLORIDE
     Indication: NAUSEA
     Dosage: DOSAGE IS UNCERTAIN.
     Route: 041
     Dates: start: 20171003
  22. LOSARTAN POTASSIUM. [Concomitant]
     Active Substance: LOSARTAN POTASSIUM
     Indication: HYPERTENSION
     Dosage: DOSAGE IS UNCERTAIN.
     Route: 048
     Dates: start: 20180408
  23. NIFEDIPINE. [Concomitant]
     Active Substance: NIFEDIPINE
     Indication: HYPERTENSION
     Dosage: DOSAGE IS UNCERTAIN.
     Route: 048
     Dates: start: 20171125
  24. NALDEMEDINE TOSILATE [Concomitant]
     Active Substance: NALDEMEDINE TOSYLATE
     Indication: CONSTIPATION
     Dosage: DOSAGE IS UNCERTAIN.
     Route: 048
     Dates: start: 20171006
  25. METOCLOPRAMIDE. [Concomitant]
     Active Substance: METOCLOPRAMIDE
     Indication: NAUSEA
     Dosage: DOSAGE IS UNCERTAIN.
     Route: 065
     Dates: start: 20170922
  26. DORIPENEM. [Concomitant]
     Active Substance: DORIPENEM
     Route: 065

REACTIONS (15)
  - Staphylococcal bacteraemia [Unknown]
  - Bone marrow failure [Unknown]
  - Large intestinal haemorrhage [Recovered/Resolved]
  - Malignant ascites [Unknown]
  - Large intestinal ulcer [Fatal]
  - Respiratory failure [Fatal]
  - Staphylococcal bacteraemia [Recovered/Resolved]
  - Pulmonary oedema [Unknown]
  - Ascites [Unknown]
  - Neutrophil count decreased [Unknown]
  - Pulmonary alveolar haemorrhage [Unknown]
  - Klebsiella bacteraemia [Fatal]
  - Cancer pain [Recovering/Resolving]
  - Platelet count decreased [Unknown]
  - Pleural effusion [Unknown]

NARRATIVE: CASE EVENT DATE: 20180618
